FAERS Safety Report 11221761 (Version 1)
Quarter: 2015Q2

REPORT INFORMATION
  Report Type: Spontaneous
  Country: DE (occurrence: DE)
  Receive Date: 20150626
  Receipt Date: 20150626
  Transmission Date: 20150821
  Serious: Yes (Other)
  Sender: FDA-Public Use
  Company Number: DE-PFIZER INC-2015212239

PATIENT
  Sex: Male

DRUGS (2)
  1. UNACID [Suspect]
     Active Substance: AMPICILLIN SODIUM\SULBACTAM SODIUM
     Dosage: UNK
  2. UNACID PD [Suspect]
     Active Substance: SULTAMICILLIN TOSYLATE
     Dosage: UNK
     Route: 048

REACTIONS (1)
  - Melaena [Unknown]
